FAERS Safety Report 23473473 (Version 1)
Quarter: 2024Q1

REPORT INFORMATION
  Report Type: Spontaneous
  Country: FR (occurrence: FR)
  Receive Date: 20240203
  Receipt Date: 20240203
  Transmission Date: 20240410
  Serious: Yes (Other)
  Sender: FDA-Public Use
  Company Number: FR-AFSSAPS-AVNY2023000626

PATIENT
  Age: 15 Year
  Sex: Male
  Weight: 54 kg

DRUGS (1)
  1. ALPRAZOLAM [Suspect]
     Active Substance: ALPRAZOLAM
     Indication: Product used for unknown indication
     Dosage: 1 MILLIGRAM
     Route: 065
     Dates: start: 20231123, end: 20231123

REACTIONS (2)
  - Drug use disorder [Unknown]
  - Substance use disorder [Unknown]

NARRATIVE: CASE EVENT DATE: 20231123
